FAERS Safety Report 6918030-4 (Version None)
Quarter: 2010Q3

REPORT INFORMATION
  Report Type: 
  Country: None (occurrence: None)
  Receive Date: 20100810
  Receipt Date: 20091022
  Transmission Date: 20110219
  Serious: No
  Sender: FDA-Public Use
  Company Number: US-PFIZER INC-2009266900

PATIENT
  Sex: Female
  Weight: 143 kg

DRUGS (6)
  1. TOVIAZ [Suspect]
     Indication: URINARY INCONTINENCE
     Dosage: 8 MG, 1X/DAY
     Route: 048
     Dates: start: 20090825, end: 20090831
  2. SYNTHROID [Concomitant]
     Indication: HYPOTHYROIDISM
     Dosage: 125 UG, 1X/DAY
     Route: 048
     Dates: start: 20040101
  3. ACIPHEX [Concomitant]
     Indication: DYSPEPSIA
     Dosage: 20 MG, 1X/DAY
     Route: 048
     Dates: start: 20040101
  4. EFFEXOR [Concomitant]
     Indication: DEPRESSION
     Dosage: 150 MG, 3X/DAY
     Route: 048
     Dates: start: 20030101
  5. ADDERALL 10 [Concomitant]
     Indication: DISTURBANCE IN ATTENTION
     Dosage: 20 MG, 1X/DAY
     Route: 048
     Dates: start: 20080101
  6. PROVIGIL [Concomitant]
     Indication: HYPERSOMNIA
     Dosage: 200 MG, 2X/DAY
     Route: 048
     Dates: start: 20060101

REACTIONS (2)
  - PAIN [None]
  - VOMITING [None]
